FAERS Safety Report 6174854-5 (Version None)
Quarter: 2009Q2

REPORT INFORMATION
  Report Type: 
  Country: None (occurrence: None)
  Receive Date: 20090430
  Receipt Date: 20081202
  Transmission Date: 20091009
  Serious: No
  Sender: FDA-Public Use
  Company Number: US-ASTRAZENECA-2008UW26789

PATIENT
  Age: 13982 Day
  Sex: Female

DRUGS (1)
  1. NEXIUM [Suspect]
     Route: 048
     Dates: start: 20061202

REACTIONS (2)
  - DRUG DOSE OMISSION [None]
  - DYSPEPSIA [None]
